FAERS Safety Report 8200949-8 (Version None)
Quarter: 2012Q1

REPORT INFORMATION
  Report Type: 
  Country: None (occurrence: None)
  Receive Date: 20120312
  Receipt Date: 20110921
  Transmission Date: 20120608
  Serious: No
  Sender: FDA-Public Use
  Company Number: US-ABBOTT-11P-163-0851329-00

PATIENT
  Sex: Female
  Weight: 63.56 kg

DRUGS (2)
  1. LUPRON DEPOT [Suspect]
     Indication: UTERINE LEIOMYOMA
     Route: 030
     Dates: start: 20110701
  2. LUPRON DEPOT [Suspect]
     Route: 030
     Dates: start: 20101229, end: 20101229

REACTIONS (5)
  - OEDEMA PERIPHERAL [None]
  - PAIN IN EXTREMITY [None]
  - ARTHRALGIA [None]
  - HOT FLUSH [None]
  - HYPERHIDROSIS [None]
